FAERS Safety Report 25257429 (Version 1)
Quarter: 2025Q2

REPORT INFORMATION
  Report Type: Report from Study
  Country: CA (occurrence: CA)
  Receive Date: 20250430
  Receipt Date: 20250430
  Transmission Date: 20250717
  Serious: Yes (Hospitalization, Other)
  Sender: DAIICHI
  Company Number: CA-AstraZeneca-CH-00850215A

PATIENT
  Sex: Female
  Weight: 90.6 kg

DRUGS (1)
  1. ENHERTU [Suspect]
     Active Substance: FAM-TRASTUZUMAB DERUXTECAN-NXKI
     Indication: Breast cancer metastatic
     Dosage: 390 MG, ONCE EVERY 3 WK
     Route: 042
     Dates: start: 20220520

REACTIONS (3)
  - Vocal cord paralysis [Recovering/Resolving]
  - Peripheral swelling [Recovering/Resolving]
  - Neoplasm [Unknown]
